FAERS Safety Report 5639854-X (Version None)
Quarter: 2008Q1

REPORT INFORMATION
  Report Type: 
  Country: None (occurrence: None)
  Receive Date: 20080225
  Receipt Date: 20080213
  Transmission Date: 20080703
  Serious: No
  Sender: FDA-Public Use
  Company Number: B0506904A

PATIENT
  Age: 14 Year
  Sex: Male
  Weight: 54.8852 kg

DRUGS (4)
  1. RELENZA [Suspect]
     Indication: INFLUENZA
     Dosage: 10 MG / TWICE PER DAY / INHALED
     Route: 055
     Dates: start: 20080202, end: 20080203
  2. CLARITHROMYCIN [Concomitant]
  3. CARBOCISTEINE [Concomitant]
  4. AMBROXOL [Concomitant]

REACTIONS (5)
  - ABNORMAL BEHAVIOUR [None]
  - AGGRESSION [None]
  - AGITATION [None]
  - AMNESIA [None]
  - CRYING [None]
